FAERS Safety Report 16663317 (Version 1)
Quarter: 2019Q3

REPORT INFORMATION
  Report Type: Report from Study
  Country: US (occurrence: US)
  Receive Date: 20190802
  Receipt Date: 20190802
  Transmission Date: 20191004
  Serious: No
  Sender: FDA-Public Use
  Company Number: US-EXELIXIS-CABO-19020655

PATIENT
  Sex: Male

DRUGS (2)
  1. NIVOLUMAB [Concomitant]
     Active Substance: NIVOLUMAB
  2. CABOMETYX [Suspect]
     Active Substance: CABOZANTINIB S-MALATE
     Indication: RENAL CELL CARCINOMA
     Dosage: 40 MG, QD
     Route: 048
     Dates: end: 201902

REACTIONS (3)
  - Blood glucose fluctuation [Unknown]
  - Hepatic enzyme increased [Unknown]
  - Vision blurred [Unknown]
